FAERS Safety Report 9617113 (Version 4)
Quarter: 2013Q4

REPORT INFORMATION
  Report Type: Spontaneous
  Country: IE (occurrence: IE)
  Receive Date: 20131011
  Receipt Date: 20131113
  Transmission Date: 20140711
  Serious: Yes (Other)
  Sender: FDA-Public Use
  Company Number: IE-BAXTER-2013BAX039143

PATIENT
  Age: 11 Year
  Sex: Male
  Weight: 63 kg

DRUGS (2)
  1. FEIBA 1000 U POWDER AND SOLVENT FOR SOLUTION FOR INFUSION [Suspect]
     Indication: FACTOR IX DEFICIENCY
     Route: 042
     Dates: start: 201303
  2. FEIBA 1000 U POWDER AND SOLVENT FOR SOLUTION FOR INFUSION [Suspect]
     Indication: PROPHYLAXIS

REACTIONS (3)
  - Nephrotic syndrome [Not Recovered/Not Resolved]
  - Arthropathy [Unknown]
  - Haemarthrosis [Unknown]
